FAERS Safety Report 22210194 (Version 4)
Quarter: 2023Q2

REPORT INFORMATION
  Report Type: Spontaneous
  Country: CA (occurrence: CA)
  Receive Date: 20230414
  Receipt Date: 20230623
  Transmission Date: 20230722
  Serious: Yes (Other)
  Sender: FDA-Public Use
  Company Number: CA-CELLTRION INC.-2023CA003763

PATIENT

DRUGS (13)
  1. INFLECTRA [Suspect]
     Active Substance: INFLIXIMAB-DYYB
     Indication: Colitis ulcerative
     Dosage: W0 AND W2 AT THE HOSPITAL
     Route: 042
     Dates: start: 20221108, end: 20221111
  2. INFLECTRA [Suspect]
     Active Substance: INFLIXIMAB-DYYB
     Dosage: W6 AND Q8 WEEKS
     Route: 042
     Dates: start: 20221212
  3. INFLECTRA [Suspect]
     Active Substance: INFLIXIMAB-DYYB
     Dosage: 700 MG Q8 WEEKS
     Route: 042
     Dates: start: 20230207
  4. INFLECTRA [Suspect]
     Active Substance: INFLIXIMAB-DYYB
     Dosage: 700 MG Q8 WEEKS
     Route: 042
     Dates: start: 20230412
  5. INFLECTRA [Suspect]
     Active Substance: INFLIXIMAB-DYYB
     Dosage: 700 MG, W6 AND Q8 WEEKS
     Route: 042
     Dates: start: 20230607
  6. INFLECTRA [Suspect]
     Active Substance: INFLIXIMAB-DYYB
     Dosage: 700 MG, EVERY 4 WEEKS, NOT YET STARTED
     Route: 042
  7. AZATHIOPRINE [Concomitant]
     Active Substance: AZATHIOPRINE
     Dosage: 50 MG
  8. CLONAZEPAM [Concomitant]
     Active Substance: CLONAZEPAM
     Dosage: 0.5 MG
  9. DIVALPROEX SODIUM [Concomitant]
     Active Substance: DIVALPROEX SODIUM
     Dosage: 500 MG
  10. ESCITALOPRAM [Concomitant]
     Active Substance: ESCITALOPRAM OXALATE
     Dosage: UNK
  11. FYCOMPA [Concomitant]
     Active Substance: PERAMPANEL
     Dosage: UNK
  12. PREDNISONE [Concomitant]
     Active Substance: PREDNISONE
     Dosage: 60 MG
  13. TEGRETOL [Concomitant]
     Active Substance: CARBAMAZEPINE
     Dosage: 600 MG

REACTIONS (7)
  - Vein collapse [Unknown]
  - Poor venous access [Unknown]
  - Loss of therapeutic response [Unknown]
  - Condition aggravated [Not Recovered/Not Resolved]
  - Off label use [Unknown]
  - Inappropriate schedule of product administration [Unknown]
  - Off label use [Unknown]

NARRATIVE: CASE EVENT DATE: 20220101
